FAERS Safety Report 12858767 (Version 1)
Quarter: 2016Q4

REPORT INFORMATION
  Report Type: Spontaneous
  Country: US (occurrence: US)
  Receive Date: 20161018
  Receipt Date: 20161018
  Transmission Date: 20170207
  Serious: No
  Sender: FDA-Public Use
  Company Number: US-NOVOPROD-510102

PATIENT
  Age: 51 Year
  Sex: Female
  Weight: 58.96 kg

DRUGS (4)
  1. TRESIBA [Suspect]
     Active Substance: INSULIN DEGLUDEC
     Indication: TYPE 1 DIABETES MELLITUS
     Dosage: 7 U, UNK
     Route: 058
     Dates: start: 201607, end: 201607
  2. NOVOLOG [Suspect]
     Active Substance: INSULIN ASPART
     Indication: TYPE 1 DIABETES MELLITUS
     Dosage: SLIDING SCALE
     Route: 058
     Dates: start: 1996, end: 201607
  3. NOVOLOG [Suspect]
     Active Substance: INSULIN ASPART
     Dosage: DECREASED DOSE
     Route: 058
     Dates: start: 201607
  4. TRESIBA [Suspect]
     Active Substance: INSULIN DEGLUDEC
     Dosage: 6 U, UNK
     Route: 058
     Dates: start: 201607

REACTIONS (1)
  - Blood glucose decreased [Recovering/Resolving]

NARRATIVE: CASE EVENT DATE: 201607
